FAERS Safety Report 8389833-7 (Version None)
Quarter: 2012Q2

REPORT INFORMATION
  Report Type: 
  Country: None (occurrence: None)
  Receive Date: 20120529
  Receipt Date: 20120524
  Transmission Date: 20120825
  Serious: Yes (Other)
  Sender: FDA-Public Use
  Company Number: US-BAYER-2012-051904

PATIENT
  Sex: Female

DRUGS (1)
  1. MIRENA [Suspect]
     Indication: CONTRACEPTION
     Dosage: 20 MCG/24HR, UNK
     Dates: start: 20120320, end: 20120524

REACTIONS (4)
  - VAGINAL HAEMORRHAGE [None]
  - DEVICE EXPULSION [None]
  - PAIN [None]
  - GENITAL HAEMORRHAGE [None]
